FAERS Safety Report 4324119-9 (Version None)
Quarter: 2004Q1

REPORT INFORMATION
  Report Type: 
  Country: None (occurrence: None)
  Receive Date: 20040326
  Receipt Date: 20031222
  Transmission Date: 20041129
  Serious: No
  Sender: FDA-Public Use
  Company Number: US-GLAXOSMITHKLINE-A0443912A

PATIENT
  Age: 63 Year
  Sex: Female

DRUGS (5)
  1. ADVAIR DISKUS 100/50 [Suspect]
     Indication: ASTHMA
     Dosage: 1PUFF TWICE PER DAY
     Route: 055
     Dates: start: 20030801, end: 20031219
  2. SINGULAIR [Concomitant]
  3. PREDNISONE [Concomitant]
  4. NASONEX [Concomitant]
  5. METHOTREXATE [Concomitant]

REACTIONS (1)
  - ARTHRITIS [None]
